FAERS Safety Report 7897551-4 (Version None)
Quarter: 2011Q4

REPORT INFORMATION
  Report Type: 
  Country: None (occurrence: None)
  Receive Date: 20111107
  Receipt Date: 20111103
  Transmission Date: 20120403
  Serious: Yes (Death, Hospitalization)
  Sender: FDA-Public Use
  Company Number: US-JNJFOC-20110904118

PATIENT
  Sex: Male
  Weight: 65.77 kg

DRUGS (8)
  1. TYLENOL-500 [Concomitant]
     Indication: PAIN
     Route: 065
  2. LUPRON [Concomitant]
     Indication: PROSTATE CANCER METASTATIC
     Route: 065
     Dates: start: 20040526
  3. OXYCODONE [Concomitant]
     Indication: PAIN
     Route: 065
  4. ZYTIGA [Suspect]
     Indication: PROSTATE CANCER METASTATIC
     Dosage: STRENGTH: 250 MG  4 TABLETS
     Route: 048
     Dates: start: 20110701, end: 20110701
  5. PERCOCET [Concomitant]
     Indication: MUSCULAR WEAKNESS
     Route: 065
  6. PREDNISONE [Concomitant]
     Indication: PROSTATE CANCER METASTATIC
     Route: 065
  7. PERCOCET [Concomitant]
     Indication: PAIN IN EXTREMITY
     Route: 065
  8. CIPROFLOXACIN [Concomitant]
     Indication: URINARY RETENTION
     Route: 065

REACTIONS (11)
  - PROSTATE CANCER METASTATIC [None]
  - KIDNEY ENLARGEMENT [None]
  - WEIGHT DECREASED [None]
  - URINARY RETENTION [None]
  - ASTHENIA [None]
  - ABASIA [None]
  - PULMONARY EMBOLISM [None]
  - DYSPNOEA [None]
  - SPEECH DISORDER [None]
  - DECREASED APPETITE [None]
  - MALAISE [None]
